FAERS Safety Report 7367174-4 (Version None)
Quarter: 2011Q1

REPORT INFORMATION
  Report Type: 
  Country: None (occurrence: None)
  Receive Date: 20110311
  Receipt Date: 20110223
  Transmission Date: 20110831
  Serious: Yes (Death, Life-Threatening, Hospitalization)
  Sender: FDA-Public Use
  Company Number: CRC-11-055

PATIENT
  Age: 70 Year
  Sex: Female

DRUGS (1)
  1. DIGOXIN [Suspect]

REACTIONS (8)
  - NAUSEA [None]
  - CARDIO-RESPIRATORY ARREST [None]
  - RENAL FAILURE [None]
  - CARDIOACTIVE DRUG LEVEL ABOVE THERAPEUTIC [None]
  - ATRIAL FIBRILLATION [None]
  - WHITE BLOOD CELL COUNT INCREASED [None]
  - HYPERKALAEMIA [None]
  - BRADYCARDIA [None]
